FAERS Safety Report 15879617 (Version 1)
Quarter: 2019Q1

REPORT INFORMATION
  Report Type: Spontaneous
  Country: US (occurrence: US)
  Receive Date: 20190104
  Receipt Date: 20190104
  Transmission Date: 20190417
  Serious: Yes (Life-Threatening)
  Sender: FDA-Public Use
  Company Number: None

PATIENT
  Age: 77 Year
  Sex: Male
  Weight: 83.46 kg

DRUGS (1)
  1. ALT-803 [Suspect]
     Active Substance: INVESTIGATIONAL PRODUCT
     Indication: ACUTE MYELOID LEUKAEMIA
     Route: 058
     Dates: start: 20181129

REACTIONS (2)
  - Pulmonary oedema [None]
  - Oxygen saturation decreased [None]

NARRATIVE: CASE EVENT DATE: 20181227
